FAERS Safety Report 4949611-5 (Version None)
Quarter: 2006Q1

REPORT INFORMATION
  Report Type: 
  Country: None (occurrence: None)
  Receive Date: 20060315
  Receipt Date: 20060302
  Transmission Date: 20060701
  Serious: Yes (Death)
  Sender: FDA-Public Use
  Company Number: US200603001255

PATIENT
  Sex: 0

DRUGS (1)
  1. ZYPREXA [Suspect]

REACTIONS (3)
  - DIABETES MELLITUS INSULIN-DEPENDENT [None]
  - HYPERTENSION [None]
  - RENAL FAILURE CHRONIC [None]
